FAERS Safety Report 13820348 (Version 1)
Quarter: 2017Q3

REPORT INFORMATION
  Report Type: Report from Study
  Country: US (occurrence: US)
  Receive Date: 20170801
  Receipt Date: 20170801
  Transmission Date: 20171127
  Serious: Yes (Other)
  Sender: FDA-Public Use
  Company Number: US-KADMON PHARMACEUTICALS, LLC-KAD-201707-00797

PATIENT
  Age: 25 Year
  Sex: Female

DRUGS (2)
  1. VIEKIRA XR [Suspect]
     Active Substance: DASABUVIR SODIUM MONOHYDRATE\OMBITASVIR HEMINONAHYDRATE\PARITAPREVIR DIHYDRATE\RITONAVIR
     Indication: HEPATITIS C
     Route: 048
     Dates: start: 20170701
  2. RIBAVIRIN. [Suspect]
     Active Substance: RIBAVIRIN
     Indication: HEPATITIS C
     Route: 048

REACTIONS (2)
  - Skin cancer [Not Recovered/Not Resolved]
  - Breast cancer recurrent [Not Recovered/Not Resolved]

NARRATIVE: CASE EVENT DATE: 20170720
